FAERS Safety Report 7381741-3 (Version None)
Quarter: 2011Q1

REPORT INFORMATION
  Report Type: 
  Country: None (occurrence: None)
  Receive Date: 20110329
  Receipt Date: 20110318
  Transmission Date: 20110831
  Serious: Yes (Hospitalization)
  Sender: FDA-Public Use
  Company Number: US-SHIRE-SPV1-2011-00438

PATIENT
  Age: 6 Year
  Sex: Male
  Weight: 19.6 kg

DRUGS (3)
  1. VYVANSE [Suspect]
     Dosage: 10 MG, 1X/DAY:QD
     Route: 048
     Dates: start: 20100101
  2. VYVANSE [Suspect]
     Dosage: 20 MG, 1X/DAY:QD
     Route: 048
     Dates: start: 20110201, end: 20110301
  3. VYVANSE [Suspect]
     Indication: ATTENTION DEFICIT/HYPERACTIVITY DISORDER
     Dosage: 30 MG, 1X/DAY:QD
     Route: 048
     Dates: start: 20110301, end: 20110318

REACTIONS (5)
  - HALLUCINATION, VISUAL [None]
  - EAR INFECTION [None]
  - PYREXIA [None]
  - MENTAL DISORDER [None]
  - RHINORRHOEA [None]
